FAERS Safety Report 4781787-5 (Version None)
Quarter: 2005Q3

REPORT INFORMATION
  Report Type: 
  Country: None (occurrence: None)
  Receive Date: 20050927
  Receipt Date: 20050914
  Transmission Date: 20060218
  Serious: Yes (Hospitalization)
  Sender: FDA-Public Use
  Company Number: 143151USA

PATIENT
  Age: 50 Year
  Sex: Female
  Weight: 78.0187 kg

DRUGS (11)
  1. METHAZOLAMIDE [Suspect]
     Indication: GLAUCOMA
     Dosage: 50 MILLIGRAM TID ORAL
     Route: 048
     Dates: end: 20050803
  2. ALPHAGAN [Concomitant]
  3. HYDROCORTISONE [Concomitant]
  4. FLUDROCORTISONE [Concomitant]
  5. MIRAPEX [Concomitant]
  6. CYCLOBENZAPRINE HCL [Concomitant]
  7. PREVACID [Concomitant]
  8. ENALAPRIL [Concomitant]
  9. METFORMIN [Concomitant]
  10. NORVASC [Concomitant]
  11. BUPROPION [Concomitant]

REACTIONS (7)
  - BLOOD POTASSIUM DECREASED [None]
  - BLOOD SODIUM DECREASED [None]
  - CREATININE RENAL CLEARANCE DECREASED [None]
  - FATIGUE [None]
  - MALAISE [None]
  - POLLAKIURIA [None]
  - RENAL DISORDER [None]
